FAERS Safety Report 8110567-8 (Version None)
Quarter: 2012Q1

REPORT INFORMATION
  Report Type: 
  Country: None (occurrence: None)
  Receive Date: 20120203
  Receipt Date: 20120130
  Transmission Date: 20120608
  Serious: No
  Sender: FDA-Public Use
  Company Number: US-PFIZER INC-2012026058

PATIENT
  Sex: Female
  Weight: 50.34 kg

DRUGS (3)
  1. NORCO [Concomitant]
     Indication: MIGRAINE
     Dosage: 10/325MG, 3X/DAY
  2. METHADONE [Concomitant]
     Indication: SCOLIOSIS
     Dosage: 20 MG, 3X/DAY
  3. CELEBREX [Suspect]
     Dosage: 400 MG, 1X/DAY
     Dates: start: 20120125, end: 20120130

REACTIONS (6)
  - NAUSEA [None]
  - ASTHENIA [None]
  - INFLUENZA LIKE ILLNESS [None]
  - NIGHTMARE [None]
  - FEELING JITTERY [None]
  - PAIN [None]
